FAERS Safety Report 14481615 (Version 17)
Quarter: 2019Q2

REPORT INFORMATION
  Report Type: Spontaneous
  Country: CA (occurrence: CA)
  Receive Date: 20180202
  Receipt Date: 20190630
  Transmission Date: 20190711
  Serious: Yes (Other)
  Sender: FDA-Public Use
  Company Number: CA-CELLTRION INC.-2017CA013130

PATIENT

DRUGS (23)
  1. INFLECTRA [Suspect]
     Active Substance: INFLIXIMAB-DYYB
     Dosage: 5 MG/KG, EVERY 6 WEEKS
     Route: 042
     Dates: start: 20190122
  2. INDERAL [Concomitant]
     Active Substance: PROPRANOLOL HYDROCHLORIDE
     Dosage: 30 MG, 2X/DAY
  3. INFLECTRA [Suspect]
     Active Substance: INFLIXIMAB-DYYB
     Dosage: 300 MG, EVERY 0, 2, 6 WEEKS, THEN EVERY 8 WEEKS
     Route: 042
     Dates: start: 20180108, end: 20180108
  4. INFLECTRA [Suspect]
     Active Substance: INFLIXIMAB-DYYB
     Dosage: 5 MG/KG, EVERY 6 WEEKS
     Route: 042
     Dates: start: 20190221
  5. INFLECTRA [Suspect]
     Active Substance: INFLIXIMAB-DYYB
     Dosage: 5 MG/KG, EVERY 6 WEEKS
     Route: 042
     Dates: start: 20190325
  6. SULFATE FERREUX [Concomitant]
     Dosage: 300 MG, 1X/DAY
  7. INFLECTRA [Suspect]
     Active Substance: INFLIXIMAB-DYYB
     Dosage: 10 MG/KG, (500 MG)
     Route: 042
     Dates: start: 20180430
  8. PREDNISONE. [Concomitant]
     Active Substance: PREDNISONE
     Dosage: UNK TAPPER
     Dates: start: 201708
  9. INFLECTRA [Suspect]
     Active Substance: INFLIXIMAB-DYYB
     Dosage: 300 MG, EVERY 0, 2, 6 WEEKS, THEN EVERY 8 WEEKS
     Route: 042
     Dates: start: 20171113
  10. INFLECTRA [Suspect]
     Active Substance: INFLIXIMAB-DYYB
     Dosage: 5 MG/KG, EVERY 6 WEEKS
     Route: 042
     Dates: start: 20180305, end: 20181126
  11. INFLECTRA [Suspect]
     Active Substance: INFLIXIMAB-DYYB
     Dosage: 5 MG/KG, EVERY 6 WEEKS
     Route: 042
     Dates: start: 20190522
  12. INFLECTRA [Suspect]
     Active Substance: INFLIXIMAB-DYYB
     Dosage: 5 MG/KG, EVERY 6 WEEKS
     Route: 042
     Dates: start: 20180613
  13. INFLECTRA [Suspect]
     Active Substance: INFLIXIMAB-DYYB
     Dosage: 467 MG, EVERY 6 WEEKS
     Route: 042
     Dates: start: 20181015
  14. NASOCORT [Concomitant]
     Active Substance: BUDESONIDE
     Dosage: UNK
  15. INFLECTRA [Suspect]
     Active Substance: INFLIXIMAB-DYYB
     Dosage: 5 MG/KG, COMPLEMENTARY DOSE
     Route: 042
     Dates: start: 20180201, end: 20180201
  16. INFLECTRA [Suspect]
     Active Substance: INFLIXIMAB-DYYB
     Dosage: 5 MG/KG, EVERY 6 WEEKS
     Route: 042
     Dates: start: 20180613
  17. INFLECTRA [Suspect]
     Active Substance: INFLIXIMAB-DYYB
     Dosage: 5 MG/KG, EVERY 6 WEEKS
     Route: 042
     Dates: start: 20180905
  18. INFLECTRA [Suspect]
     Active Substance: INFLIXIMAB-DYYB
     Dosage: 5 MG/KG, EVERY 6 WEEKS
     Route: 042
     Dates: start: 20181126
  19. PREDNISONE. [Concomitant]
     Active Substance: PREDNISONE
     Dosage: TAPPER DOSE
  20. INFLECTRA [Suspect]
     Active Substance: INFLIXIMAB-DYYB
     Dosage: 5 MG/KG, Q4 WEEKS
     Route: 042
     Dates: start: 20181224
  21. INFLECTRA [Suspect]
     Active Substance: INFLIXIMAB-DYYB
     Dosage: 5 MG/KG, EVERY 6 WEEKS
     Route: 042
     Dates: start: 20190422
  22. INFLECTRA [Suspect]
     Active Substance: INFLIXIMAB-DYYB
     Indication: COLITIS ULCERATIVE
     Dosage: 300 MG, EVERY 0, 2, 6 WEEKS, THEN EVERY 8 WEEKS
     Route: 042
     Dates: start: 20170929, end: 20180108
  23. OXAZEPAM. [Concomitant]
     Active Substance: OXAZEPAM
     Dosage: 15 MG, AS NEEDED AT BEDTIME

REACTIONS (11)
  - Off label use [Unknown]
  - Incorrect dose administered [Unknown]
  - Fatigue [Unknown]
  - Blood pressure fluctuation [Unknown]
  - Drug level increased [Unknown]
  - Dyspnoea [Unknown]
  - Condition aggravated [Unknown]
  - Migraine [Unknown]
  - Nasopharyngitis [Unknown]
  - Therapeutic response shortened [Unknown]
  - Stress [Unknown]

NARRATIVE: CASE EVENT DATE: 201711
